FAERS Safety Report 14993804 (Version 1)
Quarter: 2018Q2

REPORT INFORMATION
  Report Type: Spontaneous
  Country: GB (occurrence: GB)
  Receive Date: 20180611
  Receipt Date: 20180611
  Transmission Date: 20180711
  Serious: Yes (Disabling, Other)
  Sender: FDA-Public Use
  Company Number: GB-CONCORDIA PHARMACEUTICALS INC.-E2B_00012381

PATIENT
  Age: 45 Year
  Weight: 69.85 kg

DRUGS (4)
  1. COCODAMOL [Concomitant]
     Active Substance: ACETAMINOPHEN\CODEINE PHOSPHATE
  2. MIZOLLEN [Concomitant]
     Active Substance: MIZOLASTINE
  3. SERTRALINE [Concomitant]
     Active Substance: SERTRALINE HYDROCHLORIDE
  4. PREDNISOLONE. [Suspect]
     Active Substance: PREDNISOLONE
     Indication: SOLAR URTICARIA
     Route: 048
     Dates: start: 20180511, end: 20180515

REACTIONS (14)
  - Fatigue [Not Recovered/Not Resolved]
  - Irritability [Not Recovered/Not Resolved]
  - Disturbance in attention [Not Recovered/Not Resolved]
  - Fatigue [Unknown]
  - Depression [Unknown]
  - Hallucination, auditory [Not Recovered/Not Resolved]
  - Panic reaction [Not Recovered/Not Resolved]
  - Hyperacusis [Unknown]
  - Dissociation [Not Recovered/Not Resolved]
  - Sensory disturbance [Unknown]
  - Tremor [Not Recovered/Not Resolved]
  - Hypervigilance [Unknown]
  - Anxiety [Not Recovered/Not Resolved]
  - Dyspnoea [Unknown]

NARRATIVE: CASE EVENT DATE: 20180513
